FAERS Safety Report 9770255 (Version 1)
Quarter: 2013Q4

REPORT INFORMATION
  Report Type: Spontaneous
  Country: BR (occurrence: BR)
  Receive Date: 20131218
  Receipt Date: 20131218
  Transmission Date: 20140711
  Serious: Yes (Hospitalization)
  Sender: FDA-Public Use
  Company Number: BR-B.I. PHARMACEUTICALS,INC./RIDGEFIELD-2013-BI-41977BR

PATIENT
  Age: 72 Year
  Sex: Male

DRUGS (4)
  1. PRADAXA [Suspect]
     Indication: INTRACARDIAC THROMBUS
     Dosage: 300 MG
     Route: 048
     Dates: start: 20130720
  2. CARVEDILOL [Concomitant]
     Indication: CORONARY ARTERY DISEASE
  3. LOSARTANA [Concomitant]
     Indication: HYPERTENSION
     Dosage: 100 MG
     Route: 048
  4. INSULIN [Concomitant]
     Indication: TYPE 2 DIABETES MELLITUS

REACTIONS (2)
  - Ischaemic stroke [Recovered/Resolved]
  - Drug ineffective [Recovered/Resolved]
